FAERS Safety Report 13776680 (Version 2)
Quarter: 2017Q3

REPORT INFORMATION
  Report Type: Report from Study
  Country: US (occurrence: US)
  Receive Date: 20170721
  Receipt Date: 20170803
  Transmission Date: 20171127
  Serious: Yes (Hospitalization, Other)
  Sender: FDA-Public Use
  Company Number: US-TAIHO ONCOLOGY INC-EU-2017-00998

PATIENT
  Age: 80 Year
  Sex: Male
  Weight: 74.91 kg

DRUGS (19)
  1. LOPERAMIDE [Concomitant]
     Active Substance: LOPERAMIDE
     Indication: DIARRHOEA
     Dosage: 2 CAPS AFTER FIRST LOOSE STOOL AND 1 CAP EVERY 2 HOURS UNTIL 12 HOURS AFTER LAST LOOSE STOOL
     Route: 048
     Dates: start: 20161216
  2. PROCHLORPERAZINE. [Concomitant]
     Active Substance: PROCHLORPERAZINE
     Indication: VOMITING
  3. PARACETAMOL [Concomitant]
     Active Substance: ACETAMINOPHEN
     Indication: PYREXIA
  4. SENNOSIDE A+B/DOCUSATE SODIUM [Concomitant]
     Dosage: 50-8.5 MG 2 TABLETS
     Route: 048
     Dates: start: 20161216
  5. ACETYLSALICYLIC ACID [Concomitant]
     Active Substance: ASPIRIN
     Route: 048
     Dates: start: 20161203
  6. FUROSEMIDE. [Concomitant]
     Active Substance: FUROSEMIDE
     Route: 048
  7. PARACETAMOL/HYDROCODONE BITARTRATE [Concomitant]
     Indication: PAIN
     Dosage: 5/325 MG 1-2 TABLETS, AS NEEDED
     Route: 048
     Dates: start: 20170606, end: 20170629
  8. VANCOMYCIN [Suspect]
     Active Substance: VANCOMYCIN
     Indication: NEUTROPENIC SEPSIS
     Route: 041
  9. LONSURF [Suspect]
     Active Substance: TIPIRACIL HYDROCHLORIDE\TRIFLURIDINE
     Indication: COLON CANCER STAGE IV
     Dosage: CYCLE 2 STARTED ON 06JUL2017
     Route: 048
     Dates: start: 20170524, end: 20170611
  10. PROCHLORPERAZINE. [Concomitant]
     Active Substance: PROCHLORPERAZINE
     Indication: NAUSEA
     Dosage: AS NEEDED
     Route: 048
     Dates: start: 20170523
  11. TICAGRELOR. [Concomitant]
     Active Substance: TICAGRELOR
     Route: 048
     Dates: start: 20161203
  12. VANCOMYCIN [Suspect]
     Active Substance: VANCOMYCIN
     Indication: FEBRILE NEUTROPENIA
  13. LISINOPRIL. [Concomitant]
     Active Substance: LISINOPRIL
     Route: 048
     Dates: start: 20170313
  14. PARACETAMOL [Concomitant]
     Active Substance: ACETAMINOPHEN
     Indication: PAIN
     Dosage: EVERY 4-6 HOURS
     Route: 048
  15. THERA-M [Concomitant]
     Route: 048
     Dates: start: 20161129
  16. CARVEDILOL. [Concomitant]
     Active Substance: CARVEDILOL
     Dosage: WITH MEALS
     Route: 048
     Dates: start: 20161129
  17. GLYCERYL TRINITRATE [Concomitant]
     Active Substance: NITROGLYCERIN
     Indication: CHEST PAIN
     Dosage: AS NEEDED
     Route: 060
     Dates: start: 20161203
  18. KLOR-CON [Concomitant]
     Active Substance: POTASSIUM CHLORIDE
     Indication: HYPOKALAEMIA
     Route: 048
     Dates: start: 20170104, end: 20170629
  19. EMLA [Concomitant]
     Active Substance: LIDOCAINE\PRILOCAINE
     Dosage: APPLY TO PORT 1 HOUR PRIOR TO ACCESS

REACTIONS (14)
  - Dehydration [Recovered/Resolved]
  - Febrile neutropenia [Recovered/Resolved]
  - Oedema peripheral [Unknown]
  - Pathological fracture [Unknown]
  - Nausea [Not Recovered/Not Resolved]
  - Pancytopenia [Recovered/Resolved]
  - Acute kidney injury [Recovered/Resolved]
  - Device occlusion [Recovered/Resolved]
  - Cholangitis [Recovered/Resolved]
  - Hypomagnesaemia [Unknown]
  - Neutropenic sepsis [Recovered/Resolved]
  - Decreased appetite [Recovering/Resolving]
  - Hypokalaemia [Unknown]
  - Asthenia [Unknown]

NARRATIVE: CASE EVENT DATE: 201706
